FAERS Safety Report 13449269 (Version 1)
Quarter: 2017Q2

REPORT INFORMATION
  Report Type: Spontaneous
  Country: US (occurrence: US)
  Receive Date: 20170417
  Receipt Date: 20170417
  Transmission Date: 20170830
  Serious: No
  Sender: FDA-Public Use
  Company Number: US-EAGLE PHARMACEUTICALS, INC.-US-2017EAG000016

PATIENT

DRUGS (6)
  1. DOCETAXEL INJECTION NON-ALCOHOL FORMULA [Suspect]
     Active Substance: DOCETAXEL
     Dosage: UNK (CYCLE 3)
     Dates: start: 20170203
  2. CARBO                              /00740901/ [Concomitant]
     Active Substance: CARBOPLATIN
     Indication: PRODUCT USED FOR UNKNOWN INDICATION
     Dosage: UNK
     Dates: start: 20170113
  3. HERCEPTIN [Concomitant]
     Active Substance: TRASTUZUMAB
     Indication: PRODUCT USED FOR UNKNOWN INDICATION
     Dosage: UNK
     Dates: start: 20170113
  4. DOCETAXEL INJECTION NON-ALCOHOL FORMULA [Suspect]
     Active Substance: DOCETAXEL
     Dosage: UNK
     Dates: start: 20170113
  5. PERJETA [Concomitant]
     Active Substance: PERTUZUMAB
     Indication: PRODUCT USED FOR UNKNOWN INDICATION
     Dosage: UNK
     Dates: start: 20170113
  6. DOCETAXEL INJECTION NON-ALCOHOL FORMULA [Suspect]
     Active Substance: DOCETAXEL
     Indication: BREAST CANCER
     Dosage: UNK
     Dates: start: 20161202

REACTIONS (2)
  - Contusion [Unknown]
  - Peripheral swelling [Unknown]
